FAERS Safety Report 22809081 (Version 2)
Quarter: 2023Q4

REPORT INFORMATION
  Report Type: Spontaneous
  Country: US (occurrence: None)
  Receive Date: 20230810
  Receipt Date: 20231002
  Transmission Date: 20240110
  Serious: No
  Sender: FDA-Public Use
  Company Number: 2023A179634

PATIENT
  Sex: Female

DRUGS (1)
  1. TEZSPIRE [Suspect]
     Active Substance: TEZEPELUMAB-EKKO
     Route: 058
     Dates: start: 20230523

REACTIONS (15)
  - Influenza like illness [Unknown]
  - Nasopharyngitis [Unknown]
  - Abdominal discomfort [Unknown]
  - Back pain [Unknown]
  - Bone pain [Unknown]
  - Anxiety [Unknown]
  - Mental disorder [Unknown]
  - Crying [Unknown]
  - Scar [Unknown]
  - Hormone level abnormal [Unknown]
  - Hyperhidrosis [Unknown]
  - Device use issue [Unknown]
  - Inappropriate schedule of product administration [Unknown]
  - Wrong technique in device usage process [Unknown]
  - Product physical issue [Unknown]
